FAERS Safety Report 19961291 (Version 2)
Quarter: 2021Q4

REPORT INFORMATION
  Report Type: Spontaneous
  Country: US (occurrence: US)
  Receive Date: 20211017
  Receipt Date: 20211110
  Transmission Date: 20220303
  Serious: No
  Sender: FDA-Public Use
  Company Number: US-JNJFOC-20210944760

PATIENT
  Age: 68 Year
  Sex: Female

DRUGS (1)
  1. RHINOCORT ALLERGY [Suspect]
     Active Substance: BUDESONIDE
     Indication: Product used for unknown indication
     Dates: start: 202105, end: 202107

REACTIONS (4)
  - Dysgeusia [Recovered/Resolved]
  - Poor quality product administered [Unknown]
  - Product container seal issue [Unknown]
  - Suspected counterfeit product [Unknown]

NARRATIVE: CASE EVENT DATE: 20210101
